FAERS Safety Report 17362580 (Version 3)
Quarter: 2020Q1

REPORT INFORMATION
  Report Type: Not Available
  Country: US (occurrence: US)
  Receive Date: 20200203
  Receipt Date: 20200310
  Transmission Date: 20200409
  Serious: No
  Sender: FDA-Public Use
  Company Number: US-NEUROCRINE BIOSCIENCES INC.-2020NBI00248

PATIENT
  Sex: Female

DRUGS (2)
  1. INGREZZA [Suspect]
     Active Substance: VALBENAZINE
     Route: 048
     Dates: end: 20200128
  2. INGREZZA [Suspect]
     Active Substance: VALBENAZINE
     Indication: TARDIVE DYSKINESIA
     Route: 048
     Dates: start: 20191105

REACTIONS (7)
  - Drug ineffective [Unknown]
  - Oral pain [Unknown]
  - Dysstasia [Unknown]
  - Urticaria [Unknown]
  - Respiratory rate increased [Unknown]
  - Nervousness [Unknown]
  - Akathisia [Unknown]
